FAERS Safety Report 15464536 (Version 1)
Quarter: 2018Q4

REPORT INFORMATION
  Report Type: Spontaneous
  Country: US (occurrence: US)
  Receive Date: 20181004
  Receipt Date: 20181004
  Transmission Date: 20190204
  Serious: Yes (Hospitalization)
  Sender: FDA-Public Use
  Company Number: US-PRINSTON PHARMACEUTICAL INC.-2018PRN00796

PATIENT
  Sex: Female

DRUGS (3)
  1. UNSPECIFIED MEDICATION FOR HIGH BLOOD PRESSURE [Concomitant]
  2. VALSARTAN. [Suspect]
     Active Substance: VALSARTAN
     Indication: HYPERTENSION
     Dosage: 160 MG, 1X/DAY
     Route: 048
     Dates: start: 2016, end: 2018
  3. UNSPECIFIED MEDICATION FOR CHOLESTEROL [Concomitant]

REACTIONS (3)
  - Hepatic lesion [Not Recovered/Not Resolved]
  - Weight decreased [Unknown]
  - Blood albumin decreased [Not Recovered/Not Resolved]

NARRATIVE: CASE EVENT DATE: 2018
